FAERS Safety Report 6846328-7 (Version None)
Quarter: 2010Q3

REPORT INFORMATION
  Report Type: 
  Country: None (occurrence: None)
  Receive Date: 20100715
  Receipt Date: 20070917
  Transmission Date: 20110219
  Serious: No
  Sender: FDA-Public Use
  Company Number: US-PFIZER INC-2007078399

PATIENT
  Sex: Female
  Weight: 75 kg

DRUGS (11)
  1. CHANTIX [Suspect]
     Indication: SMOKING CESSATION THERAPY
     Dates: start: 20070901
  2. WARFARIN SODIUM [Concomitant]
  3. INSULIN [Concomitant]
  4. NEURONTIN [Concomitant]
  5. PREMARIN [Concomitant]
  6. POTASSIUM CHLORIDE [Concomitant]
  7. RANITIDINE [Concomitant]
  8. TOPROL-XL [Concomitant]
  9. PRINIVIL [Concomitant]
  10. RESTORIL [Concomitant]
  11. FOLGARD [Concomitant]

REACTIONS (3)
  - ABDOMINAL DISCOMFORT [None]
  - CRYING [None]
  - DIARRHOEA [None]
